FAERS Safety Report 11112259 (Version 1)
Quarter: 2015Q2

REPORT INFORMATION
  Report Type: Spontaneous
  Country: US (occurrence: None)
  Receive Date: 20150513
  Receipt Date: 20150513
  Transmission Date: 20150821
  Serious: No
  Sender: FDA-Public Use
  Company Number: None

PATIENT
  Age: 76 Year
  Sex: Female

DRUGS (1)
  1. FORTEO [Suspect]
     Active Substance: TERIPARATIDE
     Indication: OSTEOPOROSIS
     Dosage: (0.08 ML)
     Route: 058
     Dates: start: 20141119, end: 20150511

REACTIONS (1)
  - Blood calcium increased [None]

NARRATIVE: CASE EVENT DATE: 20150507
